FAERS Safety Report 5684566-X (Version None)
Quarter: 2008Q1

REPORT INFORMATION
  Report Type: 
  Country: None (occurrence: None)
  Receive Date: 20080328
  Receipt Date: 20070312
  Transmission Date: 20080703
  Serious: Yes (Other)
  Sender: FDA-Public Use
  Company Number: US-BRISTOL-MYERS SQUIBB COMPANY-13682992

PATIENT
  Age: 58 Year
  Sex: Male

DRUGS (6)
  1. ERBITUX [Suspect]
     Indication: NEOPLASM MALIGNANT
     Route: 042
  2. CARBOPLATIN [Suspect]
  3. FLUOROURACIL [Suspect]
  4. TAXOTERE [Suspect]
  5. BENADRYL [Concomitant]
     Indication: PREMEDICATION
  6. SOLU-MEDROL [Concomitant]

REACTIONS (1)
  - INFUSION RELATED REACTION [None]
